FAERS Safety Report 7578203-7 (Version None)
Quarter: 2011Q2

REPORT INFORMATION
  Report Type: 
  Country: None (occurrence: None)
  Receive Date: 20110628
  Receipt Date: 20110607
  Transmission Date: 20111010
  Serious: Yes (Congenital Anomaly)
  Sender: FDA-Public Use
  Company Number: A0933283A

PATIENT
  Sex: Male
  Weight: 2.9 kg

DRUGS (2)
  1. PAXIL [Suspect]
     Indication: DEPRESSION
     Dosage: 40MG PER DAY
     Route: 064
  2. XANAX [Concomitant]
     Indication: DEPRESSION
     Route: 064

REACTIONS (3)
  - TALIPES [None]
  - MACROCEPHALY [None]
  - DRUG EXPOSURE DURING PREGNANCY [None]
